FAERS Safety Report 14454078 (Version 1)
Quarter: 2018Q1

REPORT INFORMATION
  Report Type: Spontaneous
  Country: US (occurrence: US)
  Receive Date: 20180129
  Receipt Date: 20180129
  Transmission Date: 20180509
  Serious: No
  Sender: FDA-Public Use
  Company Number: US-PERRIGO-17US023873

PATIENT
  Age: 74 Year
  Sex: Male
  Weight: 117.91 kg

DRUGS (1)
  1. IBUPROFEN AND DIPHENHYDRAMINE CITRATE [Suspect]
     Active Substance: DIPHENHYDRAMINE CITRATE\IBUPROFEN
     Indication: WRONG DRUG ADMINISTERED
     Dosage: 4 TABLETS, SINGLE
     Route: 048
     Dates: start: 20170522, end: 20170522

REACTIONS (2)
  - Product name confusion [Recovered/Resolved]
  - Somnolence [Unknown]

NARRATIVE: CASE EVENT DATE: 20170522
